FAERS Safety Report 13023362 (Version 1)
Quarter: 2016Q4

REPORT INFORMATION
  Report Type: Spontaneous
  Country: US (occurrence: US)
  Receive Date: 20161211
  Receipt Date: 20161211
  Transmission Date: 20170207
  Serious: Yes (Life-Threatening, Other)
  Sender: FDA-Public Use
  Company Number: None

PATIENT
  Age: 43 Year
  Sex: Male
  Weight: 90 kg

DRUGS (10)
  1. OXYCODONE [Concomitant]
     Active Substance: OXYCODONE
  2. VITAMIN D [Concomitant]
     Active Substance: CHOLECALCIFEROL
  3. NAPROXEN. [Concomitant]
     Active Substance: NAPROXEN
  4. FLONASE [Concomitant]
     Active Substance: FLUTICASONE PROPIONATE
  5. ARMODAFINIL. [Suspect]
     Active Substance: ARMODAFINIL
     Indication: SOMNOLENCE
     Dosage: ?          QUANTITY:1 TABLET(S);?
     Route: 048
  6. GABAPENTIN. [Concomitant]
     Active Substance: GABAPENTIN
  7. ARMODAFINIL. [Concomitant]
     Active Substance: ARMODAFINIL
  8. PAMELOR [Concomitant]
     Active Substance: NORTRIPTYLINE HYDROCHLORIDE
  9. TRAMADOL. [Concomitant]
     Active Substance: TRAMADOL
  10. ACYCLOVIR. [Concomitant]
     Active Substance: ACYCLOVIR

REACTIONS (7)
  - Affective disorder [None]
  - Anger [None]
  - Somnolence [None]
  - Sleep attacks [None]
  - Impaired work ability [None]
  - Somnambulism [None]
  - Drug effect decreased [None]
